FAERS Safety Report 15577148 (Version 1)
Quarter: 2018Q4

REPORT INFORMATION
  Report Type: Report from Study
  Country: BE (occurrence: BE)
  Receive Date: 20181102
  Receipt Date: 20181102
  Transmission Date: 20190205
  Serious: Yes (Hospitalization)
  Sender: FDA-Public Use
  Company Number: BE-IPSEN BIOPHARMACEUTICALS, INC.-2018-16478

PATIENT
  Age: 38 Year
  Sex: Female

DRUGS (1)
  1. SOMATULINE AUTOGEL INJECTABLE 120MG [Suspect]
     Active Substance: LANREOTIDE ACETATE
     Indication: HEPATIC CYST
     Dosage: 120 MG
     Route: 058
     Dates: start: 20180312

REACTIONS (2)
  - Intracranial aneurysm [Unknown]
  - Off label use [Unknown]

NARRATIVE: CASE EVENT DATE: 20180312
